FAERS Safety Report 22120220 (Version 2)
Quarter: 2023Q2

REPORT INFORMATION
  Report Type: Report from Study
  Country: CA (occurrence: CA)
  Receive Date: 20230321
  Receipt Date: 20230531
  Transmission Date: 20230721
  Serious: Yes (Hospitalization)
  Sender: FDA-Public Use
  Company Number: CA-JNJFOC-20230231822

PATIENT
  Age: 84 Year
  Sex: Male
  Weight: 88 kg

DRUGS (2)
  1. SIMPONI [Suspect]
     Active Substance: GOLIMUMAB
     Indication: Rheumatoid arthritis
     Route: 058
  2. ASPIRIN [Concomitant]
     Active Substance: ASPIRIN
     Indication: Product used for unknown indication

REACTIONS (9)
  - Pneumonia [Recovered/Resolved]
  - Chest discomfort [Not Recovered/Not Resolved]
  - Urinary retention [Unknown]
  - Fluid retention [Unknown]
  - Pericardial effusion [Recovered/Resolved]
  - Pallor [Unknown]
  - Weight decreased [Unknown]
  - Hypotension [Unknown]
  - Heart rate irregular [Unknown]

NARRATIVE: CASE EVENT DATE: 20230127
